FAERS Safety Report 18683737 (Version 2)
Quarter: 2023Q1

REPORT INFORMATION
  Report Type: Spontaneous
  Country: US (occurrence: US)
  Receive Date: 20201230
  Receipt Date: 20230329
  Transmission Date: 20230418
  Serious: No
  Sender: FDA-Public Use
  Company Number: US-PFIZER INC-2019236100

PATIENT
  Age: 57 Year
  Sex: Female
  Weight: 64.41 kg

DRUGS (3)
  1. PRISTIQ EXTENDED-RELEASE [Suspect]
     Active Substance: DESVENLAFAXINE SUCCINATE
     Dosage: 100 MG, 2X/DAY (TWO QHS (EVERY BED TIME))
  2. PRISTIQ EXTENDED-RELEASE [Suspect]
     Active Substance: DESVENLAFAXINE SUCCINATE
     Dosage: 200 MG, 1X/DAY
     Route: 048
     Dates: start: 2009
  3. TAMOXIFEN [Concomitant]
     Active Substance: TAMOXIFEN
     Indication: Breast cancer female
     Dosage: 20 MG

REACTIONS (2)
  - Dizziness [Unknown]
  - Feeling abnormal [Unknown]
